FAERS Safety Report 4838052-7 (Version None)
Quarter: 2005Q4

REPORT INFORMATION
  Report Type: 
  Country: None (occurrence: None)
  Receive Date: 20051123
  Receipt Date: 20051123
  Transmission Date: 20060501
  Serious: Yes (Life-Threatening)
  Sender: FDA-Public Use
  Company Number: None

PATIENT
  Age: 87 Year
  Sex: Male
  Weight: 74.4 kg

DRUGS (3)
  1. GATIFLOXACIN [Suspect]
  2. METOPROLOL [Concomitant]
  3. DIGOXIN [Concomitant]

REACTIONS (1)
  - ARRHYTHMIA [None]
